FAERS Safety Report 9373757 (Version 1)
Quarter: 2013Q2

REPORT INFORMATION
  Report Type: Spontaneous
  Country: US (occurrence: US)
  Receive Date: 20130628
  Receipt Date: 20130628
  Transmission Date: 20140414
  Serious: No
  Sender: FDA-Public Use
  Company Number: US-B.I. PHARMACEUTICALS,INC./RIDGEFIELD-2013-BI-18000BP

PATIENT
  Age: 53 Year
  Sex: Female
  Weight: 66 kg

DRUGS (3)
  1. MICARDIS [Suspect]
     Indication: HYPERTENSION
     Dosage: 40 MG
     Route: 048
     Dates: start: 2005
  2. XANAX [Concomitant]
     Indication: ANXIETY
     Dosage: 0.25 MG
     Route: 048
  3. XANAX [Concomitant]
     Dosage: 0.5 MG
     Route: 048

REACTIONS (2)
  - Nausea [Recovered/Resolved]
  - Somnolence [Recovered/Resolved]
